FAERS Safety Report 5119417-5 (Version None)
Quarter: 2006Q3

REPORT INFORMATION
  Report Type: 
  Country: None (occurrence: None)
  Receive Date: 20060929
  Receipt Date: 20060906
  Transmission Date: 20061208
  Serious: Yes (Death)
  Sender: FDA-Public Use
  Company Number: 06H-163-0310391-00

PATIENT
  Sex: Male

DRUGS (1)
  1. MORPHINE SULFATE/5% DEXTROSE 1MG/ML INJECTION (MORPHINE SULFATE IN DEX [Suspect]
     Indication: PAIN
     Dosage: 7 MG, 1 IN 1 HR, INTRAVENOUS
     Route: 042
     Dates: start: 20060902, end: 20060902

REACTIONS (4)
  - INCORRECT DRUG ADMINISTRATION DURATION [None]
  - MEDICATION ERROR [None]
  - OVERDOSE [None]
  - RESPIRATORY DEPRESSION [None]
